FAERS Safety Report 8887003 (Version 2)
Quarter: 2013Q1

REPORT INFORMATION
  Report Type: Spontaneous
  Country: SI (occurrence: SI)
  Receive Date: 20121105
  Receipt Date: 20130110
  Transmission Date: 20140127
  Serious: Yes (Other)
  Sender: FDA-Public Use
  Company Number: SI-JNJFOC-20121014939

PATIENT
  Age: 44 Year
  Sex: Male
  Weight: 102 kg

DRUGS (3)
  1. STELARA [Suspect]
     Indication: PSORIASIS
     Route: 058
     Dates: start: 20120615
  2. STELARA [Suspect]
     Indication: PSORIASIS
     Route: 058
     Dates: start: 20120515
  3. STELARA [Suspect]
     Indication: PSORIASIS
     Route: 058
     Dates: start: 20120907, end: 20120907

REACTIONS (3)
  - Furuncle [Recovered/Resolved]
  - Carbuncle [Recovered/Resolved]
  - Glossitis [Recovered/Resolved]
